FAERS Safety Report 4643341-5 (Version None)
Quarter: 2005Q2

REPORT INFORMATION
  Report Type: 
  Country: None (occurrence: None)
  Receive Date: 20050421
  Receipt Date: 20050217
  Transmission Date: 20051028
  Serious: Yes (Other)
  Sender: FDA-Public Use
  Company Number: 2005033141

PATIENT
  Sex: Male
  Weight: 87.9978 kg

DRUGS (3)
  1. DILANTIN KAPSEAL [Suspect]
     Indication: CONVULSION
     Dosage: ORAL
     Route: 048
     Dates: start: 20040801
  2. FLUTICASONE PROPIONATE [Concomitant]
  3. DIPHENHYDRAMINE HCL [Concomitant]

REACTIONS (8)
  - ANXIETY [None]
  - CONVULSION [None]
  - DIZZINESS [None]
  - DRUG ADMINISTRATION ERROR [None]
  - HAEMORRHAGE [None]
  - INFLUENZA [None]
  - LOSS OF CONSCIOUSNESS [None]
  - NASOPHARYNGITIS [None]
